FAERS Safety Report 15333958 (Version 1)
Quarter: 2018Q3

REPORT INFORMATION
  Report Type: Spontaneous
  Country: US (occurrence: US)
  Receive Date: 20180825
  Receipt Date: 20180825
  Transmission Date: 20181010
  Serious: Yes (Other)
  Sender: FDA-Public Use
  Company Number: None

PATIENT
  Age: 38 Year
  Sex: Female
  Weight: 62.55 kg

DRUGS (2)
  1. LEVOTHYROXINE. [Suspect]
     Active Substance: LEVOTHYROXINE
     Indication: HYPOTHYROIDISM
     Dosage: ?          QUANTITY:1 TABLET(S);?
     Route: 048
  2. VITAMIN D [Concomitant]
     Active Substance: CHOLECALCIFEROL

REACTIONS (5)
  - Skin exfoliation [None]
  - Temperature intolerance [None]
  - Rash [None]
  - Skin swelling [None]
  - Eye swelling [None]

NARRATIVE: CASE EVENT DATE: 20180803
